FAERS Safety Report 4971519-X (Version None)
Quarter: 2006Q2

REPORT INFORMATION
  Report Type: 
  Country: None (occurrence: None)
  Receive Date: 20060406
  Receipt Date: 20060323
  Transmission Date: 20061013
  Serious: Yes (Life-Threatening, Hospitalization)
  Sender: FDA-Public Use
  Company Number: T200600112

PATIENT
  Age: 67 Year
  Sex: Male

DRUGS (3)
  1. OPTIRAY 160 [Suspect]
     Indication: COMPUTERISED TOMOGRAM
     Dosage: 95 ML, SINGLE, INTRAVENOUS
     Route: 042
     Dates: start: 20060323, end: 20060323
  2. AMLODIPINE BESYLATE [Concomitant]
  3. SODIUM PICOSULFATE (SODIUM PICOSULFATE) [Concomitant]

REACTIONS (4)
  - ANAPHYLACTIC SHOCK [None]
  - APHASIA [None]
  - CONTRAST MEDIA REACTION [None]
  - FALL [None]
